FAERS Safety Report 8894891 (Version 2)
Quarter: 2012Q4

REPORT INFORMATION
  Report Type: 
  Country: GB (occurrence: GB)
  Receive Date: 20121108
  Receipt Date: 20121205
  Transmission Date: 20130627
  Serious: Yes (Disabling, Other)
  Sender: FDA-Public Use
  Company Number: PHFR2012GB005173

PATIENT
  Age: 53 Year
  Sex: Male

DRUGS (4)
  1. CLOZARIL [Suspect]
     Indication: SCHIZOPHRENIA
     Dosage: 450 mg, (100 mg mane, 350 mg nocte)
     Route: 048
     Dates: start: 20040102
  2. HYOSCINE HYDROBROMIDE [Concomitant]
     Dosage: 300 ug, UNK
     Route: 048
     Dates: start: 20040504
  3. SENNA [Concomitant]
  4. MACROGOL [Concomitant]

REACTIONS (5)
  - Renal failure chronic [Not Recovered/Not Resolved]
  - Neutrophil count increased [Unknown]
  - Eosinophil count increased [Unknown]
  - Type 2 diabetes mellitus [Not Recovered/Not Resolved]
  - White blood cell count increased [Not Recovered/Not Resolved]
